FAERS Safety Report 8158793-6 (Version None)
Quarter: 2012Q1

REPORT INFORMATION
  Report Type: 
  Country: None (occurrence: None)
  Receive Date: 20120223
  Receipt Date: 20120215
  Transmission Date: 20120608
  Serious: Yes (Other)
  Sender: FDA-Public Use
  Company Number: PHHY2012CH013960

PATIENT
  Age: 9 Year
  Sex: Female
  Weight: 20 kg

DRUGS (3)
  1. ESIDRIX [Suspect]
     Dosage: 25 MG, BID
     Route: 048
     Dates: start: 20111222, end: 20111223
  2. ALDACTONE [Suspect]
     Dosage: 25 MG, UNK
     Route: 048
  3. ASPIRIN [Concomitant]
     Dosage: 60 MG, UNK
     Route: 048

REACTIONS (5)
  - PAIN IN EXTREMITY [None]
  - MUSCLE SPASMS [None]
  - NAUSEA [None]
  - CONVULSION [None]
  - ABDOMINAL PAIN [None]
